FAERS Safety Report 8081968-1 (Version None)
Quarter: 2012Q1

REPORT INFORMATION
  Report Type: 
  Country: None (occurrence: None)
  Receive Date: 20120130
  Receipt Date: 20110902
  Transmission Date: 20120608
  Serious: No
  Sender: FDA-Public Use
  Company Number: US-ABBOTT-11P-163-0852663-00

PATIENT
  Sex: Male
  Weight: 90.8 kg

DRUGS (3)
  1. LUPRON DEPOT [Suspect]
     Indication: PROSTATE CANCER
     Dates: start: 20110301
  2. CRESTOR [Concomitant]
     Indication: HYPERLIPIDAEMIA
  3. CIPROFLOXACIN [Suspect]
     Indication: URINARY TRACT INFECTION
     Dates: end: 20110301

REACTIONS (9)
  - INITIAL INSOMNIA [None]
  - JOINT SWELLING [None]
  - URINARY TRACT INFECTION [None]
  - MUSCLE ATROPHY [None]
  - DIARRHOEA [None]
  - MUSCULAR WEAKNESS [None]
  - DIABETES MELLITUS [None]
  - ARTHRITIS [None]
  - MUSCLE FATIGUE [None]
